FAERS Safety Report 4733000-2 (Version None)
Quarter: 2005Q3

REPORT INFORMATION
  Report Type: 
  Country: None (occurrence: None)
  Receive Date: 20050725
  Receipt Date: 20040524
  Transmission Date: 20060218
  Serious: Yes (Disabling, Other)
  Sender: FDA-Public Use
  Company Number: WAES 0405USA01754

PATIENT
  Age: 76 Year
  Sex: Female

DRUGS (9)
  1. VIOXX [Suspect]
     Indication: OSTEOARTHRITIS
     Dosage: 50 MG/DAILY/PO
     Route: 048
     Dates: start: 20031101, end: 20040126
  2. COZAAR [Concomitant]
  3. HYDRODIURIL [Concomitant]
  4. LIBRIUM [Concomitant]
  5. PRINIVIL [Concomitant]
  6. PROTONIX [Concomitant]
  7. SYNTHROID [Concomitant]
  8. ZOCOR [Concomitant]
  9. POTASSIUM CHLORIDE [Concomitant]

REACTIONS (1)
  - BLOOD PRESSURE INCREASED [None]
